FAERS Safety Report 22029755 (Version 2)
Quarter: 2023Q1

REPORT INFORMATION
  Report Type: Spontaneous
  Country: US (occurrence: US)
  Receive Date: 20230223
  Receipt Date: 20230308
  Transmission Date: 20230418
  Serious: No
  Sender: FDA-Public Use
  Company Number: US-PFIZER INC-202300077945

PATIENT
  Age: 75 Year
  Sex: Male

DRUGS (1)
  1. PAXLOVID [Suspect]
     Active Substance: NIRMATRELVIR\RITONAVIR
     Indication: COVID-19 treatment
     Dosage: 3 DF, 2X/DAY (300 MG NIRMATRELVIR (TWO 150 MG TABLETS) WITH 100 MG RITONAVIR (ONE 100 MG TABLET)

REACTIONS (1)
  - Abdominal pain upper [Not Recovered/Not Resolved]
